FAERS Safety Report 4850356-0 (Version None)
Quarter: 2005Q4

REPORT INFORMATION
  Report Type: 
  Country: None (occurrence: None)
  Receive Date: 20051207
  Receipt Date: 20051207
  Transmission Date: 20060501
  Serious: Yes (Life-Threatening, Hospitalization)
  Sender: FDA-Public Use
  Company Number: None

PATIENT
  Age: 86 Year
  Sex: Female
  Weight: 64.4108 kg

DRUGS (9)
  1. NAMENDA [Suspect]
     Indication: DEMENTIA
     Dates: start: 20040211
  2. SULFAZINE [Concomitant]
  3. METOPROLOL [Concomitant]
  4. CALCIUM GLUCONATE [Concomitant]
  5. RAZIDINE [Concomitant]
  6. FOSAMAX [Concomitant]
  7. ASPIRIN [Concomitant]
  8. HYDROCHLOROTHIAZIDE [Concomitant]
  9. COUMADIN [Concomitant]

REACTIONS (6)
  - ATRIAL FIBRILLATION [None]
  - CARCINOID SYNDROME [None]
  - CARDIAC FAILURE CONGESTIVE [None]
  - PLEURAL EFFUSION [None]
  - PNEUMONIA [None]
  - TRICUSPID VALVE INCOMPETENCE [None]
